FAERS Safety Report 4840034-6 (Version None)
Quarter: 2005Q4

REPORT INFORMATION
  Report Type: 
  Country: None (occurrence: None)
  Receive Date: 20051125
  Receipt Date: 20051027
  Transmission Date: 20060501
  Serious: Yes (Hospitalization, Other)
  Sender: FDA-Public Use
  Company Number: MAG-2005-0000394

PATIENT
  Age: 68 Year
  Sex: Female

DRUGS (2)
  1. THEOPHYLLINE [Suspect]
     Dosage: ORAL
     Route: 048
  2. ISOPROTERENOL SULPHATE-METHYLATROPINE BROMIDE [Concomitant]

REACTIONS (11)
  - ADRENAL INSUFFICIENCY [None]
  - ANOREXIA [None]
  - BLOOD POTASSIUM INCREASED [None]
  - CUSHING'S SYNDROME [None]
  - DRUG TOXICITY [None]
  - HYPOKALAEMIA [None]
  - NASOPHARYNGITIS [None]
  - NAUSEA [None]
  - OVERDOSE [None]
  - PREMATURE MENOPAUSE [None]
  - VOMITING [None]
